FAERS Safety Report 20774889 (Version 1)
Quarter: 2022Q2

REPORT INFORMATION
  Report Type: Spontaneous
  Country: US (occurrence: None)
  Receive Date: 20220501
  Receipt Date: 20220501
  Transmission Date: 20220721
  Serious: Yes (Other)
  Sender: FDA-Public Use
  Company Number: None

PATIENT
  Age: 78 Year
  Sex: Female
  Weight: 56.25 kg

DRUGS (1)
  1. ENOXAPARIN [Suspect]
     Active Substance: ENOXAPARIN
     Indication: Anticoagulant therapy
     Dosage: FREQUENCY : DAILY;?
     Route: 058
     Dates: start: 20220307, end: 20220328

REACTIONS (3)
  - Injection related reaction [None]
  - Pain [None]
  - Lacrimation increased [None]

NARRATIVE: CASE EVENT DATE: 20220307
